FAERS Safety Report 22101404 (Version 1)
Quarter: 2023Q1

REPORT INFORMATION
  Report Type: Spontaneous
  Country: CN (occurrence: CN)
  Receive Date: 20230316
  Receipt Date: 20230316
  Transmission Date: 20230418
  Serious: Yes (Hospitalization)
  Sender: FDA-Public Use
  Company Number: CN-PADAGIS-2023PAD00340

PATIENT

DRUGS (12)
  1. CYCLOSPORINE [Suspect]
     Active Substance: CYCLOSPORINE
     Indication: Evans syndrome
     Dosage: 125 MG, QD, (4.0 MG/KG)
     Route: 065
  2. METHYLPREDNISOLONE [Suspect]
     Active Substance: METHYLPREDNISOLONE
     Indication: Evans syndrome
     Dosage: 180 MG, BID
     Route: 065
  3. METHYLPREDNISOLONE [Suspect]
     Active Substance: METHYLPREDNISOLONE
     Dosage: 40 MG PER DAY
     Route: 065
  4. THROMBOPOIETIN [Suspect]
     Active Substance: THROMBOPOIETIN
     Indication: Evans syndrome
     Dosage: 15000 UNIT/DAY
     Route: 065
  5. THROMBOPOIETIN [Suspect]
     Active Substance: THROMBOPOIETIN
     Indication: Immune thrombocytopenia
     Dosage: UNK
     Route: 065
  6. ELTROMBOPAG [Suspect]
     Active Substance: ELTROMBOPAG
     Indication: Evans syndrome
     Dosage: 25 MG PER DAY (INITIALLY)
     Route: 065
  7. ELTROMBOPAG [Suspect]
     Active Substance: ELTROMBOPAG
     Dosage: 75 MG/ DAY
     Route: 065
  8. DEXAMETHASONE [Suspect]
     Active Substance: DEXAMETHASONE
     Indication: Evans syndrome
     Dosage: UNK (HIGH DOSE)
     Route: 065
  9. DEXAMETHASONE [Suspect]
     Active Substance: DEXAMETHASONE
     Indication: Immune thrombocytopenia
     Dosage: UNK (HIGH DOSE)
     Route: 065
  10. DEXAMETHASONE [Suspect]
     Active Substance: DEXAMETHASONE
     Dosage: 40 MG
     Route: 065
  11. RITUXIMAB [Suspect]
     Active Substance: RITUXIMAB
     Indication: Evans syndrome
     Dosage: 300 MGPER  WEEK (TWO DOSES)
     Route: 065
  12. AZATHIOPRINE [Suspect]
     Active Substance: AZATHIOPRINE
     Indication: Evans syndrome
     Dosage: 50 MG PER DAY
     Route: 065

REACTIONS (2)
  - Treatment failure [Unknown]
  - Product use in unapproved indication [Unknown]
